FAERS Safety Report 7923167-7 (Version None)
Quarter: 2011Q4

REPORT INFORMATION
  Report Type: 
  Country: None (occurrence: None)
  Receive Date: 20111117
  Receipt Date: 20110128
  Transmission Date: 20120403
  Serious: No
  Sender: FDA-Public Use
  Company Number: US-AMGEN-USASP2011005486

PATIENT
  Sex: Female

DRUGS (2)
  1. ENBREL [Suspect]
     Indication: RHEUMATOID ARTHRITIS
     Dosage: 50 MG, QWK
     Dates: start: 20010601, end: 20110113
  2. METHOTREXATE [Concomitant]
     Dosage: 1 MG, QWK
     Dates: start: 20010601

REACTIONS (8)
  - ARTHRODESIS [None]
  - BLISTER [None]
  - ARTHRITIS [None]
  - LOCAL SWELLING [None]
  - DRUG EFFECT DECREASED [None]
  - INFECTION [None]
  - PAIN IN EXTREMITY [None]
  - HYPOAESTHESIA [None]
